FAERS Safety Report 6387374-X (Version None)
Quarter: 2009Q3

REPORT INFORMATION
  Report Type: 
  Country: None (occurrence: None)
  Receive Date: 20090930
  Receipt Date: 20090914
  Transmission Date: 20100115
  Serious: Yes (Hospitalization)
  Sender: FDA-Public Use
  Company Number: 2008AL008831

PATIENT
  Age: 44 Year
  Sex: Male
  Weight: 96.6162 kg

DRUGS (68)
  1. DIGOXIN [Suspect]
     Dosage: 0.125MG, DAILY, PO
     Route: 048
  2. SYNTHROID [Concomitant]
  3. LOVAZA [Concomitant]
  4. CIALIS [Concomitant]
  5. CRESTOR [Concomitant]
  6. GLYBURIDE [Concomitant]
  7. JANUMET [Concomitant]
  8. COREG [Concomitant]
  9. VITAMIN D [Concomitant]
  10. LESCOL [Concomitant]
  11. LEVITRA [Concomitant]
  12. LASIX [Concomitant]
  13. SPIRONOLACTONE [Concomitant]
  14. ZESTRIL [Concomitant]
  15. ERGOCALCIFEROL [Concomitant]
  16. GLIMEPIRIDE [Concomitant]
  17. POTASSIUM CHLORIDE [Concomitant]
  18. GLUCOPHAGE [Concomitant]
  19. TOPROL-XL [Concomitant]
  20. LISINOPRIL [Concomitant]
  21. FUROSEMIDE [Concomitant]
  22. AMARYL [Concomitant]
  23. ADVAIR DISKUS 100/50 [Concomitant]
  24. METFORMIN HYDROCHLORIDE [Concomitant]
  25. GLYBURIDE [Concomitant]
  26. METHYLPRED [Concomitant]
  27. AVELOX [Concomitant]
  28. TUSSIONEX [Concomitant]
  29. NIASPAN [Concomitant]
  30. AMOXICILLIN [Concomitant]
  31. LEVOTHROID [Concomitant]
  32. TESTIM [Concomitant]
  33. ANDRODERM [Concomitant]
  34. FLUZONE [Concomitant]
  35. BENZONATATE [Concomitant]
  36. ATROVENT [Concomitant]
  37. VIAGRA [Concomitant]
  38. JANUVIA [Concomitant]
  39. VYTORIN [Concomitant]
  40. PROPO-N/APAP [Concomitant]
  41. AZITHROMYCIN [Concomitant]
  42. CIALIS [Concomitant]
  43. NAPROXEN [Concomitant]
  44. .. [Concomitant]
  45. .. [Concomitant]
  46. .. [Concomitant]
  47. .. [Concomitant]
  48. .. [Concomitant]
  49. .. [Concomitant]
  50. .. [Concomitant]
  51. .. [Concomitant]
  52. DROSPRENINE-ETHINYL-ESTRADIOL [Concomitant]
  53. CHLORPHENIRAMINE W/HYDROCODONE [Concomitant]
  54. SITAGLIPTIN [Concomitant]
  55. METFORMIN HYDROCHLORIDE [Concomitant]
  56. VARDENAFIL [Concomitant]
  57. FLUVASTATIN [Concomitant]
  58. HYDROCODONE/IBUPROFEN [Concomitant]
  59. DOXYCYLINE [Concomitant]
  60. ADAPALENE [Concomitant]
  61. CLINDAMYCIN [Concomitant]
  62. TORSEMIDE [Concomitant]
  63. OMEPRAZOLE [Concomitant]
  64. ISOTRETINOIN [Concomitant]
  65. ZOLPIDERN [Concomitant]
  66. RETAPAMULIN [Concomitant]
  67. TOPIRARAMATE [Concomitant]
  68. PHENYLEPHRINE/PROMETHAZINE [Concomitant]

REACTIONS (31)
  - ATRIOVENTRICULAR BLOCK [None]
  - ATRIOVENTRICULAR DISSOCIATION [None]
  - BENIGN SOFT TISSUE NEOPLASM [None]
  - BRADYCARDIA [None]
  - BRONCHITIS [None]
  - BUNDLE BRANCH BLOCK LEFT [None]
  - BUNDLE BRANCH BLOCK RIGHT [None]
  - CARDIAC FAILURE [None]
  - CARDIAC FAILURE CONGESTIVE [None]
  - CARDIAC OUTPUT DECREASED [None]
  - CHEST PAIN [None]
  - CONGESTIVE CARDIOMYOPATHY [None]
  - DIABETES MELLITUS INADEQUATE CONTROL [None]
  - ENTHESOPATHY [None]
  - ERECTILE DYSFUNCTION [None]
  - FALL [None]
  - GOUT [None]
  - HAEMODYNAMIC INSTABILITY [None]
  - HEART RATE INCREASED [None]
  - HEPATIC CONGESTION [None]
  - HYPERTENSION [None]
  - HYPOGLYCAEMIA [None]
  - LEFT VENTRICULAR FAILURE [None]
  - LOSS OF CONSCIOUSNESS [None]
  - MITRAL VALVE DISEASE [None]
  - MULTIPLE INJURIES [None]
  - PAIN IN EXTREMITY [None]
  - PNEUMONIA STAPHYLOCOCCAL [None]
  - PULMONARY HYPERTENSION [None]
  - SYNCOPE [None]
  - TRICUSPID VALVE DISEASE [None]
